FAERS Safety Report 4399171-5 (Version None)
Quarter: 2004Q3

REPORT INFORMATION
  Report Type: 
  Country: None (occurrence: None)
  Receive Date: 20040716
  Receipt Date: 20040329
  Transmission Date: 20050211
  Serious: Yes (Death, Hospitalization)
  Sender: FDA-Public Use
  Company Number: PHBS2004JP04253

PATIENT
  Age: 78 Year
  Sex: Male
  Weight: 55 kg

DRUGS (5)
  1. GLEEVEC [Suspect]
     Indication: CHRONIC MYELOID LEUKAEMIA
     Dosage: 400 MG/D
     Route: 048
     Dates: start: 20030515, end: 20030704
  2. GLEEVEC [Suspect]
     Dosage: 300 MG/D
     Route: 048
     Dates: start: 20030705, end: 20030829
  3. GLEEVEC [Suspect]
     Dosage: 100 MG/D
     Route: 048
     Dates: start: 20030830, end: 20031202
  4. GASTER D [Concomitant]
     Dosage: 1 DF, QD
     Route: 048
     Dates: start: 20021224, end: 20040227
  5. GASLON [Concomitant]
     Dosage: 1 DF, QD
     Route: 048
     Dates: start: 20021224

REACTIONS (6)
  - CHEST X-RAY ABNORMAL [None]
  - DYSPNOEA EXERTIONAL [None]
  - INTERSTITIAL LUNG DISEASE [None]
  - MALAISE [None]
  - NAUSEA [None]
  - PYREXIA [None]
